FAERS Safety Report 6707311-5 (Version None)
Quarter: 2010Q2

REPORT INFORMATION
  Report Type: 
  Country: None (occurrence: None)
  Receive Date: 20100503
  Receipt Date: 20090803
  Transmission Date: 20101027
  Serious: No
  Sender: FDA-Public Use
  Company Number: US-ASTRAZENECA-2009UW21692

PATIENT
  Sex: Female
  Weight: 52.2 kg

DRUGS (6)
  1. NEXIUM [Suspect]
     Indication: GASTROOESOPHAGEAL REFLUX DISEASE
     Route: 048
     Dates: start: 20060201
  2. CENTRUM [Concomitant]
  3. POTASSIUM [Concomitant]
  4. CALCIUM WITH VITAMIN D [Concomitant]
  5. HYPERTENSION MEDICATION [Concomitant]
     Indication: HYPERTENSION
  6. HIGH CHOLESTEROL MEDICATION [Concomitant]
     Indication: BLOOD CHOLESTEROL INCREASED

REACTIONS (2)
  - BONE DENSITY DECREASED [None]
  - NAUSEA [None]
